FAERS Safety Report 18321581 (Version 1)
Quarter: 2020Q3

REPORT INFORMATION
  Report Type: Spontaneous
  Country: US (occurrence: US)
  Receive Date: 20200929
  Receipt Date: 20200929
  Transmission Date: 20201103
  Serious: Yes (Other)
  Sender: FDA-Public Use
  Company Number: US-SA-2020SA260804

PATIENT

DRUGS (1)
  1. UNISOM SLEEPGELS NIGHTTIME SLEEP?AID [Suspect]
     Active Substance: DIPHENHYDRAMINE HYDROCHLORIDE
     Indication: INSOMNIA
     Dosage: UNK

REACTIONS (3)
  - Anxiety [Unknown]
  - Treatment failure [Unknown]
  - Delirium [Unknown]
